FAERS Safety Report 7638050-4 (Version None)
Quarter: 2011Q3

REPORT INFORMATION
  Report Type: 
  Country: None (occurrence: None)
  Receive Date: 20110727
  Receipt Date: 20110719
  Transmission Date: 20111222
  Serious: Yes (Hospitalization)
  Sender: FDA-Public Use
  Company Number: US-BAYER-2011-044002

PATIENT
  Age: 40 Year
  Sex: Female
  Weight: 72.109 kg

DRUGS (3)
  1. SPIRONOLACTONE [Concomitant]
     Indication: ACNE
     Dosage: UNK
     Dates: start: 20060101
  2. BISOPROLOL FUMARATE [Concomitant]
     Indication: HYPERTENSION
     Dosage: UNK
     Dates: start: 20090101
  3. YAZ [Suspect]
     Indication: ACNE
     Dosage: UNK
     Dates: start: 20070101, end: 20090801

REACTIONS (9)
  - ABDOMINAL PAIN [None]
  - FEAR [None]
  - INJURY [None]
  - PROCEDURAL PAIN [None]
  - EMOTIONAL DISTRESS [None]
  - ANXIETY [None]
  - DYSPEPSIA [None]
  - PSYCHIATRIC SYMPTOM [None]
  - GALLBLADDER DISORDER [None]
